FAERS Safety Report 7271329-7 (Version None)
Quarter: 2011Q1

REPORT INFORMATION
  Report Type: 
  Country: None (occurrence: None)
  Receive Date: 20110203
  Receipt Date: 20110124
  Transmission Date: 20110831
  Serious: No
  Sender: FDA-Public Use
  Company Number: US-BIOGENIDEC-2011BI002424

PATIENT
  Sex: Female

DRUGS (4)
  1. NEURONTIN [Concomitant]
     Indication: MUSCULOSKELETAL DISORDER
  2. DILANTIN [Concomitant]
     Indication: MUSCULOSKELETAL DISORDER
  3. REBIF [Concomitant]
     Indication: MUSCULOSKELETAL DISORDER
  4. TYSABRI [Suspect]
     Indication: MULTIPLE SCLEROSIS
     Route: 042
     Dates: start: 20101130

REACTIONS (5)
  - TRIGEMINAL NEURALGIA [None]
  - STRESS [None]
  - MULTIPLE SCLEROSIS RELAPSE [None]
  - ANXIETY [None]
  - ASTHENIA [None]
